FAERS Safety Report 12892748 (Version 1)
Quarter: 2016Q4

REPORT INFORMATION
  Report Type: Spontaneous
  Country: BA (occurrence: BA)
  Receive Date: 20161028
  Receipt Date: 20161028
  Transmission Date: 20170207
  Serious: Yes (Hospitalization, Other)
  Sender: FDA-Public Use
  Company Number: BA-BAYER-2016-202470

PATIENT
  Sex: Female

DRUGS (1)
  1. ASPIRIN PROTECT [Suspect]
     Active Substance: ASPIRIN
     Dosage: UNK

REACTIONS (8)
  - Blood pressure increased [Recovering/Resolving]
  - Facial paresis [Recovering/Resolving]
  - Cerebral ischaemia [Recovering/Resolving]
  - Aphasia [Recovering/Resolving]
  - Extensor plantar response [Recovering/Resolving]
  - Hemiplegia [Recovering/Resolving]
  - Hemianaesthesia [Recovering/Resolving]
  - Speech disorder [Recovering/Resolving]
